FAERS Safety Report 22323501 (Version 2)
Quarter: 2023Q2

REPORT INFORMATION
  Report Type: Spontaneous
  Country: US (occurrence: US)
  Receive Date: 20230516
  Receipt Date: 20230518
  Transmission Date: 20230721
  Serious: No
  Sender: FDA-Public Use
  Company Number: US-AMGEN-USASP2023083585

PATIENT
  Sex: Male

DRUGS (1)
  1. REPATHA [Suspect]
     Active Substance: EVOLOCUMAB
     Indication: Hypercholesterolaemia
     Dosage: 140 MILLIGRAM, Q2WK
     Route: 058

REACTIONS (4)
  - Wrong technique in product usage process [Unknown]
  - Myalgia [Unknown]
  - Product storage error [Unknown]
  - Product administration error [Unknown]

NARRATIVE: CASE EVENT DATE: 20230424
